FAERS Safety Report 4662544-7 (Version None)
Quarter: 2005Q2

REPORT INFORMATION
  Report Type: 
  Country: None (occurrence: None)
  Receive Date: 20050512
  Receipt Date: 20050429
  Transmission Date: 20051028
  Serious: Yes (Hospitalization, Other)
  Sender: FDA-Public Use
  Company Number: 2005BI008566

PATIENT
  Age: 35 Year
  Sex: Female

DRUGS (5)
  1. AVONEX [Suspect]
     Indication: RELAPSING-REMITTING MULTIPLE SCLEROSIS
     Dosage: 30 UG; QW; IM
     Route: 030
     Dates: start: 19981115
  2. AVONEX [Suspect]
     Indication: RELAPSING-REMITTING MULTIPLE SCLEROSIS
     Dosage: 30 UG; QW; IM
     Route: 030
  3. LEXOMIL [Concomitant]
  4. LAROXYL [Concomitant]
  5. MODIODAL [Concomitant]

REACTIONS (2)
  - BREAST CANCER FEMALE [None]
  - HAEMOCHROMATOSIS [None]
